FAERS Safety Report 5429226-5 (Version None)
Quarter: 2007Q3

REPORT INFORMATION
  Report Type: 
  Country: None (occurrence: None)
  Receive Date: 20070827
  Receipt Date: 20070827
  Transmission Date: 20080115
  Serious: Yes (Hospitalization, Other)
  Sender: FDA-Public Use
  Company Number: None

PATIENT
  Age: 61 Year
  Sex: Female
  Weight: 131.5431 kg

DRUGS (1)
  1. CHANTIX [Suspect]
     Indication: SMOKING CESSATION THERAPY
     Dosage: ONE TABLET 1 IN AM + 1 IN PM PO
     Route: 048
     Dates: start: 20070601, end: 20070724

REACTIONS (3)
  - AMNESIA [None]
  - CONVULSION [None]
  - JOINT DISLOCATION [None]
